FAERS Safety Report 23163574 (Version 3)
Quarter: 2024Q3

REPORT INFORMATION
  Report Type: Report from Study
  Country: US (occurrence: US)
  Receive Date: 20231109
  Receipt Date: 20240708
  Transmission Date: 20241017
  Serious: No
  Sender: ACADIA PHARMACEUTICALS
  Company Number: US-ACADIA PHARMACEUTICALS INC.-ACA-2023-PIM-004517

PATIENT
  Sex: Female

DRUGS (2)
  1. NUPLAZID [Suspect]
     Active Substance: PIMAVANSERIN TARTRATE
     Indication: Parkinson^s disease psychosis
     Dosage: 34 MILLIGRAM, QD
     Route: 048
  2. NUPLAZID [Suspect]
     Active Substance: PIMAVANSERIN TARTRATE
     Dosage: 34 MILLIGRAM, QD
     Route: 048

REACTIONS (5)
  - Dysgraphia [Not Recovered/Not Resolved]
  - Product dose omission issue [Unknown]
  - Adverse drug reaction [Not Recovered/Not Resolved]
  - Abnormal dreams [Not Recovered/Not Resolved]
  - Fatigue [Not Recovered/Not Resolved]
